FAERS Safety Report 8892636 (Version 1)
Quarter: 2012Q4

REPORT INFORMATION
  Report Type: Spontaneous
  Country: US (occurrence: None)
  Receive Date: 20121105
  Receipt Date: 20121105
  Transmission Date: 20130627
  Serious: Yes (Life-Threatening, Hospitalization, Other)
  Sender: FDA-Public Use
  Company Number: None

PATIENT
  Age: 57 Year
  Sex: Male
  Weight: 95.26 kg

DRUGS (2)
  1. AMOXICILLIN [Suspect]
     Indication: SINUS INFECTION
     Dosage: 500   3  times a day  po
     Route: 048
     Dates: start: 20120927, end: 20121006
  2. E-MYCIN [Suspect]
     Indication: SINUS INFECTION
     Dosage: 400  3  times a day   po
     Route: 048
     Dates: start: 20121009, end: 20121011

REACTIONS (3)
  - Headache [None]
  - Unevaluable event [None]
  - Completed suicide [None]
